FAERS Safety Report 8274692-3 (Version None)
Quarter: 2012Q2

REPORT INFORMATION
  Report Type: 
  Country: None (occurrence: None)
  Receive Date: 20120411
  Receipt Date: 20120329
  Transmission Date: 20120825
  Serious: Yes (Hospitalization, Other)
  Sender: FDA-Public Use
  Company Number: FR-ACTELION-A-CH2012-61373

PATIENT
  Sex: Female

DRUGS (7)
  1. ASPIRIN [Concomitant]
  2. LASIX [Concomitant]
  3. TRACLEER [Suspect]
     Indication: SKIN ULCER
     Dosage: 125 MG, BID
     Route: 048
     Dates: start: 20100423, end: 20101129
  4. NEXIUM [Concomitant]
  5. PERINDOPRIL ERBUMINE [Concomitant]
  6. TRACLEER [Suspect]
     Dosage: 62.5 MG, BID
     Route: 048
     Dates: start: 20100323, end: 20100422
  7. FERROUS SULFATE TAB [Concomitant]

REACTIONS (11)
  - CYTOLYTIC HEPATITIS [None]
  - BLOOD ALKALINE PHOSPHATASE INCREASED [None]
  - GAMMA-GLUTAMYLTRANSFERASE INCREASED [None]
  - LYMPHOPENIA [None]
  - NORMOCHROMIC NORMOCYTIC ANAEMIA [None]
  - ALANINE AMINOTRANSFERASE INCREASED [None]
  - BRONCHITIS [None]
  - SUPERINFECTION [None]
  - CHOLESTASIS [None]
  - ASPARTATE AMINOTRANSFERASE INCREASED [None]
  - ABDOMINAL PAIN [None]
